FAERS Safety Report 19187372 (Version 6)
Quarter: 2023Q2

REPORT INFORMATION
  Report Type: Spontaneous
  Country: US (occurrence: US)
  Receive Date: 20210428
  Receipt Date: 20230410
  Transmission Date: 20230722
  Serious: Yes (Other)
  Sender: FDA-Public Use
  Company Number: US-SA-SAC20210426000109

PATIENT
  Age: 8 Year
  Sex: Male

DRUGS (14)
  1. ELOCTATE [Suspect]
     Active Substance: EFMOROCTOCOG ALFA
     Indication: Factor VIII deficiency
     Dosage: 1760 IU, TIW (FREQUENCY: 3 TIMES WEEKLY/PRN)
     Route: 042
     Dates: start: 20191016
  2. ELOCTATE [Suspect]
     Active Substance: EFMOROCTOCOG ALFA
     Indication: Factor VIII deficiency
     Dosage: 1760 IU, TIW (FREQUENCY: 3 TIMES WEEKLY/PRN)
     Route: 042
     Dates: start: 20191016
  3. ELOCTATE [Suspect]
     Active Substance: EFMOROCTOCOG ALFA
     Dosage: 2120 IU, TIW
     Route: 042
     Dates: start: 202107
  4. ELOCTATE [Suspect]
     Active Substance: EFMOROCTOCOG ALFA
     Dosage: 2120 IU, TIW
     Route: 042
     Dates: start: 202107
  5. ELOCTATE [Suspect]
     Active Substance: EFMOROCTOCOG ALFA
     Dosage: 2120 IU
     Route: 042
  6. ELOCTATE [Suspect]
     Active Substance: EFMOROCTOCOG ALFA
     Dosage: 2120 IU
     Route: 042
  7. ELOCTATE [Suspect]
     Active Substance: EFMOROCTOCOG ALFA
     Dosage: 1060 U
     Route: 042
  8. ELOCTATE [Suspect]
     Active Substance: EFMOROCTOCOG ALFA
     Dosage: 1060 U
     Route: 042
  9. ELOCTATE [Suspect]
     Active Substance: EFMOROCTOCOG ALFA
     Dosage: 1588 U
     Route: 042
  10. ELOCTATE [Suspect]
     Active Substance: EFMOROCTOCOG ALFA
     Dosage: 1588 U
     Route: 042
  11. ELOCTATE [Suspect]
     Active Substance: EFMOROCTOCOG ALFA
     Dosage: 2596 UNITS (2336-2855) SLOW IV PUSH EVERY 48 HOURS FOR PROPHYLAXIS AND ONCE DAILY AS NEEDED
     Route: 042
  12. ELOCTATE [Suspect]
     Active Substance: EFMOROCTOCOG ALFA
     Dosage: 2596 UNITS (2336-2855) SLOW IV PUSH EVERY 48 HOURS FOR PROPHYLAXIS AND ONCE DAILY AS NEEDED
     Route: 042
  13. ELOCTATE [Suspect]
     Active Substance: EFMOROCTOCOG ALFA
     Dosage: INFUSE 2596 UNITS (2336-2855) SLOW IV PUSH EVERY 48 HOURS FOR PROPHYLAXIS AND ONCE DAILY AS NEEDED
     Route: 042
  14. ELOCTATE [Suspect]
     Active Substance: EFMOROCTOCOG ALFA
     Dosage: INFUSE 2596 UNITS (2336-2855) SLOW IV PUSH EVERY 48 HOURS FOR PROPHYLAXIS AND ONCE DAILY AS NEEDED
     Route: 042

REACTIONS (3)
  - Haemorrhage [Recovered/Resolved]
  - Haemorrhage [Recovered/Resolved]
  - Eye injury [Recovered/Resolved]

NARRATIVE: CASE EVENT DATE: 20210101
